FAERS Safety Report 14992797 (Version 1)
Quarter: 2018Q2

REPORT INFORMATION
  Report Type: Report from Study
  Country: US (occurrence: US)
  Receive Date: 20180609
  Receipt Date: 20180609
  Transmission Date: 20180711
  Serious: Yes (Other)
  Sender: FDA-Public Use
  Company Number: US-AMGEN-USASL2018076766

PATIENT
  Age: 61 Year
  Sex: Male
  Weight: 77.11 kg

DRUGS (1)
  1. BLINCYTO [Suspect]
     Active Substance: BLINATUMOMAB
     Indication: PRECURSOR B-LYMPHOBLASTIC LYMPHOMA RECURRENT
     Dosage: UNK
     Route: 065

REACTIONS (1)
  - Cytopenia [Unknown]
